FAERS Safety Report 7062708-1 (Version None)
Quarter: 2010Q4

REPORT INFORMATION
  Report Type: 
  Country: None (occurrence: None)
  Receive Date: 20101026
  Receipt Date: 20091214
  Transmission Date: 20110411
  Serious: No
  Sender: FDA-Public Use
  Company Number: US-PFIZER INC-2009311732

PATIENT
  Age: 83 Year
  Sex: Male
  Weight: 56.689 kg

DRUGS (3)
  1. LIPITOR [Suspect]
     Indication: BLOOD CHOLESTEROL INCREASED
     Dosage: 10 MG, 1X/DAY
     Route: 048
     Dates: start: 20070101, end: 20090101
  2. LIPITOR [Suspect]
     Dosage: 5 MG, 1X/DAY
     Dates: start: 20090101, end: 20091201
  3. WARFARIN SODIUM [Concomitant]
     Indication: ATRIAL FIBRILLATION
     Dosage: 12 MG ONCE A WEEK,
     Route: 048

REACTIONS (1)
  - MYALGIA [None]
